FAERS Safety Report 22843431 (Version 5)
Quarter: 2023Q4

REPORT INFORMATION
  Report Type: Spontaneous
  Country: US (occurrence: US)
  Receive Date: 20230821
  Receipt Date: 20231108
  Transmission Date: 20240110
  Serious: No
  Sender: FDA-Public Use
  Company Number: US-PFIZER INC-PV202300139939

PATIENT
  Age: 3 Year
  Sex: Male
  Weight: 16.327 kg

DRUGS (1)
  1. GENOTROPIN [Suspect]
     Active Substance: SOMATROPIN
     Indication: Prader-Willi syndrome
     Dosage: UNK

REACTIONS (6)
  - Wrong technique in device usage process [Unknown]
  - Accidental exposure to product [Unknown]
  - Exposure via skin contact [Unknown]
  - Device mechanical issue [Unknown]
  - Device leakage [Unknown]
  - Device dislocation [Unknown]
